FAERS Safety Report 9641797 (Version 1)
Quarter: 2013Q4

REPORT INFORMATION
  Report Type: Spontaneous
  Country: IT (occurrence: IT)
  Receive Date: 20131023
  Receipt Date: 20131023
  Transmission Date: 20140711
  Serious: Yes (Hospitalization)
  Sender: FDA-Public Use
  Company Number: IT-TEVA-437828ISR

PATIENT
  Age: 51 Year
  Sex: Female
  Weight: 45 kg

DRUGS (3)
  1. CARBOPLATINO TEVA [Suspect]
     Indication: LUNG ADENOCARCINOMA
     Dosage: 360 MILLIGRAM DAILY;
     Route: 042
     Dates: start: 20131004, end: 20131004
  2. GEMCITABINA CLORIDRATO [Concomitant]
     Indication: LUNG ADENOCARCINOMA
     Dosage: 1060 MILLIGRAM DAILY;
     Route: 042
     Dates: start: 20131004, end: 20131004
  3. GRANISETRON KABI [Concomitant]
     Indication: PREMEDICATION
     Dosage: 3 MILLIGRAM DAILY; CONCENTRATE FOR INJECTABLE SOLUTION
     Route: 042
     Dates: start: 20131004, end: 20131004

REACTIONS (5)
  - Dyspnoea [Recovering/Resolving]
  - Cough [Recovering/Resolving]
  - Throat tightness [Recovering/Resolving]
  - Hyperhidrosis [Recovering/Resolving]
  - Oxygen saturation decreased [Recovering/Resolving]
